FAERS Safety Report 8000139-8 (Version None)
Quarter: 2011Q4

REPORT INFORMATION
  Report Type: 
  Country: None (occurrence: None)
  Receive Date: 20111220
  Receipt Date: 20111220
  Transmission Date: 20120403
  Serious: Yes (Life-Threatening, Hospitalization)
  Sender: FDA-Public Use
  Company Number: None

PATIENT
  Age: 53 Year
  Sex: Female
  Weight: 77 kg

DRUGS (1)
  1. EPOETIN ALFA 40,000UNITS AMGEN [Suspect]
     Indication: ANAEMIA OF MALIGNANT DISEASE
     Dosage: EPOETIN ALFA 40,000 UNITS DAILY SUBCUTANEOUS
     Route: 058
     Dates: start: 20111111

REACTIONS (2)
  - RESPIRATORY FAILURE [None]
  - PULMONARY EMBOLISM [None]
